FAERS Safety Report 9912928 (Version 1)
Quarter: 2014Q1

REPORT INFORMATION
  Report Type: Spontaneous
  Country: US (occurrence: None)
  Receive Date: 20140218
  Receipt Date: 20140218
  Transmission Date: 20141002
  Serious: Yes (Hospitalization)
  Sender: FDA-Public Use
  Company Number: None

PATIENT
  Age: 85 Year
  Sex: Female
  Weight: 44 kg

DRUGS (2)
  1. LEVETIRACETAM 1000MG [Suspect]
     Indication: CONVULSION
     Route: 042
     Dates: start: 20140116, end: 20140120
  2. LEVETIRACETAM 1000MG [Suspect]
     Indication: SUBDURAL HAEMATOMA
     Route: 042
     Dates: start: 20140116, end: 20140120

REACTIONS (4)
  - Depression [None]
  - Paranoia [None]
  - Insomnia [None]
  - Delusion [None]
